FAERS Safety Report 6584387-X (Version None)
Quarter: 2010Q1

REPORT INFORMATION
  Report Type: 
  Country: None (occurrence: None)
  Receive Date: 20100216
  Receipt Date: 20100122
  Transmission Date: 20100710
  Serious: No
  Sender: FDA-Public Use
  Company Number: US-ABBOTT-10P-163-0622588-00

PATIENT
  Sex: Female
  Weight: 113.5 kg

DRUGS (4)
  1. SIMCOR [Suspect]
     Indication: HIGH DENSITY LIPOPROTEIN DECREASED
     Dates: start: 20100121
  2. UNKNOWN MEDICATIONS [Concomitant]
     Indication: HYPERTENSION
  3. UNKNOWN MEDICATIONS [Concomitant]
     Indication: DIABETES MELLITUS
  4. SIMVASTATIN [Concomitant]
     Indication: BLOOD CHOLESTEROL INCREASED

REACTIONS (5)
  - BURNING SENSATION [None]
  - FACIAL PAIN [None]
  - FEELING HOT [None]
  - FLUSHING [None]
  - PRURITUS [None]
